FAERS Safety Report 7945808-0 (Version None)
Quarter: 2011Q4

REPORT INFORMATION
  Report Type: 
  Country: None (occurrence: None)
  Receive Date: 20111129
  Receipt Date: 20111121
  Transmission Date: 20120403
  Serious: Yes (Hospitalization, Other)
  Sender: FDA-Public Use
  Company Number: US-ROCHE-1015843

PATIENT
  Sex: Female

DRUGS (1)
  1. ZELBORAF [Suspect]
     Indication: PRODUCT USED FOR UNKNOWN INDICATION
     Dosage: UNKNOWN
     Route: 065

REACTIONS (8)
  - HEADACHE [None]
  - HERPES ZOSTER [None]
  - PAIN [None]
  - BLISTER [None]
  - EYE PAIN [None]
  - SWELLING FACE [None]
  - EYE SWELLING [None]
  - SKIN ULCER [None]
